FAERS Safety Report 9215057 (Version 1)
Quarter: 2013Q2

REPORT INFORMATION
  Report Type: Spontaneous
  Country: US (occurrence: US)
  Receive Date: 20130405
  Receipt Date: 20130405
  Transmission Date: 20140414
  Serious: Yes (Hospitalization)
  Sender: FDA-Public Use
  Company Number: US-BAYER-2013-040706

PATIENT
  Age: 18 Year
  Sex: Female
  Weight: 54.6 kg

DRUGS (7)
  1. YASMIN [Suspect]
  2. VICODIN [Concomitant]
  3. IMITREX [Concomitant]
  4. DEMEROL [Concomitant]
  5. PHENERGAN [Concomitant]
  6. DILAUDID [Concomitant]
  7. EXCEDRIN [CAFFEINE,PARACETAMOL] [Concomitant]

REACTIONS (1)
  - Intracranial venous sinus thrombosis [None]
